FAERS Safety Report 9770757 (Version 1)
Quarter: 2013Q4

REPORT INFORMATION
  Report Type: Spontaneous
  Country: IT (occurrence: IT)
  Receive Date: 20131218
  Receipt Date: 20131218
  Transmission Date: 20140711
  Serious: Yes (Hospitalization)
  Sender: FDA-Public Use
  Company Number: IT-TEVA-449096ISR

PATIENT
  Age: 45 Year
  Sex: Female

DRUGS (4)
  1. CARBOLITHIUM [Suspect]
     Indication: BIPOLAR I DISORDER
     Dosage: 1 DOSAGE FORMS DAILY;
     Route: 048
     Dates: start: 20130101, end: 20131116
  2. NOZINAN [Suspect]
     Indication: BIPOLAR I DISORDER
     Dosage: 1 DOSAGE FORMS DAILY;
     Route: 048
     Dates: start: 20130101, end: 20131116
  3. DIAZEPAM [Concomitant]
     Route: 048
  4. SERENASE [Concomitant]
     Route: 048

REACTIONS (7)
  - Hyponatraemic syndrome [Unknown]
  - Malaise [Unknown]
  - Polydipsia [Unknown]
  - Polyuria [Unknown]
  - Vomiting [Unknown]
  - Sopor [Unknown]
  - Urinary incontinence [Unknown]
